FAERS Safety Report 7314250-8 (Version None)
Quarter: 2011Q1

REPORT INFORMATION
  Report Type: 
  Country: None (occurrence: None)
  Receive Date: 20110225
  Receipt Date: 20100813
  Transmission Date: 20110831
  Serious: No
  Sender: FDA-Public Use
  Company Number: US-MYLANLABS-2010S1011210

PATIENT
  Sex: Female
  Weight: 81.65 kg

DRUGS (3)
  1. AMNESTEEM [Suspect]
     Indication: ACNE CYSTIC
     Route: 048
  2. AMNESTEEM [Suspect]
     Route: 048
  3. AMNESTEEM [Suspect]
     Route: 048

REACTIONS (2)
  - MYALGIA [None]
  - ARTHRALGIA [None]
